FAERS Safety Report 10264773 (Version 1)
Quarter: 2014Q2

REPORT INFORMATION
  Report Type: Spontaneous
  Country: NL (occurrence: None)
  Receive Date: 20140624
  Receipt Date: 20140624
  Transmission Date: 20141212
  Serious: Yes (Other)
  Sender: FDA-Public Use
  Company Number: 2014AMD00006

PATIENT
  Age: 67 Year
  Sex: Female

DRUGS (3)
  1. EPINEPHRINE [Suspect]
     Indication: LOCAL ANAESTHESIA
     Route: 014
  2. ROPIVACAINE [Suspect]
     Indication: LOCAL ANAESTHESIA
     Route: 014
  3. BUPIVACAINE\GLUCOSE [Suspect]
     Indication: SPINAL ANAESTHESIA

REACTIONS (6)
  - Clonic convulsion [None]
  - Heart rate increased [None]
  - Loss of consciousness [None]
  - Atrial fibrillation [None]
  - Chest pain [None]
  - Toxicity to various agents [None]
